FAERS Safety Report 10550744 (Version 1)
Quarter: 2014Q4

REPORT INFORMATION
  Report Type: Spontaneous
  Country: TR (occurrence: TR)
  Receive Date: 20141029
  Receipt Date: 20141029
  Transmission Date: 20150529
  Serious: Yes (Death)
  Sender: FDA-Public Use
  Company Number: TR-ROCHE-1479383

PATIENT
  Age: 73 Year
  Sex: Male

DRUGS (1)
  1. MABTHERA [Suspect]
     Active Substance: RITUXIMAB
     Indication: CHRONIC LYMPHOCYTIC LEUKAEMIA
     Route: 042

REACTIONS (2)
  - Myocardial infarction [Fatal]
  - Chest pain [Fatal]

NARRATIVE: CASE EVENT DATE: 2014
